FAERS Safety Report 25393909 (Version 1)
Quarter: 2025Q2

REPORT INFORMATION
  Report Type: Spontaneous
  Country: US (occurrence: None)
  Receive Date: 20250604
  Receipt Date: 20250604
  Transmission Date: 20250716
  Serious: Yes (Hospitalization)
  Sender: Valinor Pharma
  Company Number: US-Valinor Pharma, LLC-VLR202505-000089

PATIENT
  Sex: Female

DRUGS (1)
  1. MOVANTIK [Suspect]
     Active Substance: NALOXEGOL OXALATE
     Indication: Product used for unknown indication
     Route: 065

REACTIONS (1)
  - Intestinal perforation [Recovered/Resolved]
